FAERS Safety Report 8172543-9 (Version None)
Quarter: 2012Q1

REPORT INFORMATION
  Report Type: 
  Country: None (occurrence: None)
  Receive Date: 20120229
  Receipt Date: 20120223
  Transmission Date: 20120608
  Serious: Yes (Other)
  Sender: FDA-Public Use
  Company Number: US-AMGEN-USASP2012000122

PATIENT
  Age: 75 Year
  Sex: Female
  Weight: 58.957 kg

DRUGS (2)
  1. RITUXAN [Concomitant]
     Dosage: UNK
     Dates: start: 20090401, end: 20100101
  2. ENBREL [Suspect]
     Indication: RHEUMATOID ARTHRITIS
     Dosage: 50 MG, QWK
     Route: 058
     Dates: start: 20030301

REACTIONS (2)
  - ESSENTIAL TREMOR [None]
  - JOINT STIFFNESS [None]
